FAERS Safety Report 12647892 (Version 3)
Quarter: 2016Q4

REPORT INFORMATION
  Report Type: Spontaneous
  Country: TH (occurrence: TH)
  Receive Date: 20160812
  Receipt Date: 20161220
  Transmission Date: 20170207
  Serious: Yes (Hospitalization, Other)
  Sender: FDA-Public Use
  Company Number: TH-PFIZER INC-2016364092

PATIENT
  Age: 66 Year
  Sex: Female

DRUGS (1)
  1. SUTENT [Suspect]
     Active Substance: SUNITINIB MALATE
     Indication: METASTATIC RENAL CELL CARCINOMA
     Dosage: 50 MG, DAILY
     Route: 048
     Dates: start: 20160316, end: 20160714

REACTIONS (2)
  - Radiation skin injury [Recovering/Resolving]
  - Wound infection [Recovered/Resolved]

NARRATIVE: CASE EVENT DATE: 20160707
